FAERS Safety Report 9407443 (Version 1)
Quarter: 2013Q3

REPORT INFORMATION
  Report Type: Report from Study
  Country: RO (occurrence: RO)
  Receive Date: 20130718
  Receipt Date: 20130718
  Transmission Date: 20140515
  Serious: Yes (Other)
  Sender: FDA-Public Use
  Company Number: RO-ROCHE-1248380

PATIENT
  Sex: 0

DRUGS (1)
  1. VALGANCICLOVIR [Suspect]
     Indication: ANTIVIRAL PROPHYLAXIS
     Route: 048

REACTIONS (2)
  - Cytomegalovirus infection [Recovered/Resolved]
  - Cytomegalovirus infection [Unknown]
